FAERS Safety Report 22531690 (Version 1)
Quarter: 2023Q2

REPORT INFORMATION
  Report Type: Spontaneous
  Country: US (occurrence: US)
  Receive Date: 20230607
  Receipt Date: 20230607
  Transmission Date: 20230722
  Serious: Yes (Other)
  Sender: FDA-Public Use
  Company Number: US-MYLANLABS-2023M1060146

PATIENT
  Age: 62 Year
  Sex: Male

DRUGS (2)
  1. PAMIDRONATE [Suspect]
     Active Substance: PAMIDRONATE DISODIUM
     Indication: Hypercalcaemia of malignancy
     Dosage: 90 MILLIGRAM
     Route: 065
  2. SODIUM CHLORIDE [Concomitant]
     Active Substance: SODIUM CHLORIDE
     Indication: Hypercalcaemia of malignancy
     Dosage: UNK
     Route: 042

REACTIONS (1)
  - Drug ineffective [Unknown]
